FAERS Safety Report 8733077 (Version 5)
Quarter: 2012Q4

REPORT INFORMATION
  Report Type: 
  Country: US (occurrence: US)
  Receive Date: 20120820
  Receipt Date: 20121026
  Transmission Date: 20130627
  Serious: Yes (Hospitalization)
  Sender: FDA-Public Use
  Company Number: US-GILEAD-2012-0059876

PATIENT
  Age: 40 Year
  Sex: Male

DRUGS (4)
  1. LETAIRIS [Suspect]
     Indication: PULMONARY ARTERIAL HYPERTENSION
     Dosage: 5 mg, UNK
     Route: 048
     Dates: start: 20120605
  2. LETAIRIS [Suspect]
     Indication: DRUG ABUSE
  3. EPOPROSTENOL [Suspect]
  4. ADCIRCA [Suspect]

REACTIONS (7)
  - Pneumonia [Unknown]
  - Pyrexia [Unknown]
  - Pulmonary arterial hypertension [Unknown]
  - Device related infection [Unknown]
  - Throat tightness [Unknown]
  - Pain in jaw [Unknown]
  - Headache [Unknown]
